FAERS Safety Report 5859820-9 (Version None)
Quarter: 2008Q3

REPORT INFORMATION
  Report Type: 
  Country: None (occurrence: None)
  Receive Date: 20080827
  Receipt Date: 20080819
  Transmission Date: 20090109
  Serious: Yes (Other)
  Sender: FDA-Public Use
  Company Number: US-MERCK-0805USA00447

PATIENT
  Age: 59 Year
  Sex: Female

DRUGS (3)
  1. FOSAMAX [Suspect]
     Indication: PROPHYLAXIS
     Route: 048
     Dates: start: 20040101
  2. TOPAMAX [Concomitant]
     Indication: DEPRESSION
     Route: 065
     Dates: start: 20070101
  3. TOPAMAX [Concomitant]
     Indication: ANXIETY
     Route: 065
     Dates: start: 20070101

REACTIONS (4)
  - ANXIETY [None]
  - DEPRESSION [None]
  - JAW DISORDER [None]
  - OSTEONECROSIS [None]
